FAERS Safety Report 6920910-0 (Version None)
Quarter: 2010Q3

REPORT INFORMATION
  Report Type: 
  Country: None (occurrence: None)
  Receive Date: 20100812
  Receipt Date: 20100803
  Transmission Date: 20110219
  Serious: Yes (Hospitalization)
  Sender: FDA-Public Use
  Company Number: US-ASTRAZENECA-2010SE36241

PATIENT
  Sex: Female

DRUGS (5)
  1. ATENOLOL [Suspect]
     Route: 065
  2. SIMVASTATIN [Suspect]
  3. METOPROLOL TARTRATE [Concomitant]
  4. EXFORGE [Concomitant]
  5. ASPIRIN [Concomitant]

REACTIONS (3)
  - BLOOD PRESSURE INCREASED [None]
  - DRUG INEFFECTIVE [None]
  - ILL-DEFINED DISORDER [None]
